FAERS Safety Report 9805312 (Version 1)
Quarter: 2014Q1

REPORT INFORMATION
  Report Type: Spontaneous
  Country: FR (occurrence: None)
  Receive Date: 20140106
  Receipt Date: 20140106
  Transmission Date: 20141002
  Serious: Yes (Life-Threatening)
  Sender: FDA-Public Use
  Company Number: 225095

PATIENT
  Age: 90 Year
  Sex: Male

DRUGS (10)
  1. DAIVOBET [Suspect]
     Indication: PRODUCT USED FOR UNKNOWN INDICATION
     Route: 061
     Dates: start: 20131113
  2. OMEPRAZOLE (OMEPRAZOLE) [Suspect]
     Indication: PRODUCT USED FOR UNKNOWN INDICATION
     Dates: start: 20131109
  3. OXYBUTININE [Suspect]
     Indication: PRODUCT USED FOR UNKNOWN INDICATION
     Dates: start: 20131109
  4. DIPROSONE [Suspect]
     Indication: PRODUCT USED FOR UNKNOWN INDICATION
     Dates: start: 20131113
  5. AERIUS (DESLORATADINE) [Suspect]
     Indication: PRODUCT USED FOR UNKNOWN INDICATION
     Dates: start: 20131113
  6. OMEXEL [Suspect]
     Indication: PRODUCT USED FOR UNKNOWN INDICATION
     Dates: start: 20131120
  7. AZITHROMYCINE ANHYDRE [Suspect]
     Indication: PRODUCT USED FOR UNKNOWN INDICATION
     Dates: start: 20131127
  8. AMLOR (AMLODIPINE BESILATE) [Concomitant]
  9. KARDEGIC (ACETYLSALICYLATE LYSINE) [Concomitant]
  10. ATENOLOL (ATENOLOL) [Concomitant]

REACTIONS (1)
  - Agranulocytosis [None]
